FAERS Safety Report 5281095-2 (Version None)
Quarter: 2007Q1

REPORT INFORMATION
  Report Type: 
  Country: None (occurrence: None)
  Receive Date: 20061229
  Receipt Date: 20060912
  Transmission Date: 20070707
  Serious: Yes (Other)
  Sender: FDA-Public Use
  Company Number: 2006UW11637

PATIENT
  Age: 53 Year
  Sex: Male
  Weight: 104.3273 kg

DRUGS (6)
  1. CRESTOR [Suspect]
     Indication: BLOOD CHOLESTEROL ABNORMAL
     Dosage: 10 MG DAILY PO
     Route: 048
     Dates: start: 20060401, end: 20060424
  2. DIOVAN [Concomitant]
  3. NEXIUM ORAL [Concomitant]
  4. BYETTA [Concomitant]
  5. PLAVIX [Concomitant]
  6. SOMA [Concomitant]

REACTIONS (1)
  - DERMATITIS HERPETIFORMIS [None]
